FAERS Safety Report 9861640 (Version 4)
Quarter: 2014Q3

REPORT INFORMATION
  Report Type: Spontaneous
  Country: GB (occurrence: GB)
  Receive Date: 20140203
  Receipt Date: 20140929
  Transmission Date: 20150326
  Serious: Yes (Other)
  Sender: FDA-Public Use
  Company Number: GB-BEH-2014040373

PATIENT
  Age: 64 Year
  Sex: Female
  Weight: 57 kg

DRUGS (15)
  1. PRIVIGEN [Suspect]
     Active Substance: HUMAN IMMUNOGLOBULIN G
  2. ENOXAPARIN [Concomitant]
     Active Substance: ENOXAPARIN
     Indication: PROPHYLACTIC CHEMOTHERAPY
     Dosage: NOCTE
     Route: 058
     Dates: start: 20140111
  3. PABRINEX [Concomitant]
     Indication: NUTRITIONAL SUPPLEMENTATION
     Dosage: T
     Route: 042
     Dates: start: 20140115, end: 20140122
  4. SENNA [Concomitant]
     Active Substance: SENNA LEAF\SENNOSIDES\SENNOSIDES A AND B
     Indication: CONSTIPATION
     Dosage: (SYMBOL)/NOCTE
     Route: 048
     Dates: start: 20140120, end: 20140128
  5. PRIVIGEN [Suspect]
     Active Substance: HUMAN IMMUNOGLOBULIN G
     Indication: GUILLAIN-BARRE SYNDROME
     Dosage: 2 G/KG  DIVIDED OVER 5 DAYS WAS SELECTED AND SHE RECEIVED 120G PRIVIGEN
     Route: 042
     Dates: start: 20140112, end: 20140112
  6. PRIVIGEN [Suspect]
     Active Substance: HUMAN IMMUNOGLOBULIN G
  7. DEMECLOCYCLINE [Concomitant]
     Active Substance: DEMECLOCYCLINE
     Indication: INAPPROPRIATE ANTIDIURETIC HORMONE SECRETION
     Dosage: VIA NASOGASTRIC TUBE (NGT)
     Dates: start: 20140113, end: 20140117
  8. LANSOPRAZOLE. [Concomitant]
     Active Substance: LANSOPRAZOLE
     Dosage: OD
     Route: 048
     Dates: start: 20140122, end: 20140122
  9. PRIVIGEN [Suspect]
     Active Substance: HUMAN IMMUNOGLOBULIN G
     Dosage: 2 G/KG  DIVIDED OVER 5 DAYS WAS SELECTED AND SHE RECEIVED 120G PRIVIGEN
     Route: 042
     Dates: start: 20140113, end: 20140113
  10. PRIVIGEN [Suspect]
     Active Substance: HUMAN IMMUNOGLOBULIN G
     Dosage: 2 G/KG  DIVIDED OVER 5 DAYS WAS SELECTED AND SHE RECEIVED 120G PRIVIGEN
     Route: 042
     Dates: start: 20140114, end: 20140114
  11. PRIVIGEN [Suspect]
     Active Substance: HUMAN IMMUNOGLOBULIN G
     Dosage: 2 G/KG  DIVIDED OVER 5 DAYS WAS SELECTED AND SHE RECEIVED 120G PRIVIGEN
     Route: 042
     Dates: start: 20140115, end: 20140115
  12. PRIVIGEN [Suspect]
     Active Substance: HUMAN IMMUNOGLOBULIN G
  13. PRIVIGEN [Suspect]
     Active Substance: HUMAN IMMUNOGLOBULIN G
     Dosage: 2 G/KG  DIVIDED OVER 5 DAYS WAS SELECTED AND SHE RECEIVED 120G PRIVIGEN
     Route: 042
     Dates: start: 20140111, end: 20140111
  14. LANSOPRAZOLE. [Concomitant]
     Active Substance: LANSOPRAZOLE
     Dosage: OD
     Route: 048
     Dates: start: 20140114, end: 20140120
  15. LAXIDO [Concomitant]
     Active Substance: POLYETHYLENE GLYCOL 3350\POTASSIUM CHLORIDE\SODIUM BICARBONATE\SODIUM CHLORIDE
     Indication: CONSTIPATION
     Dosage: T
     Route: 048

REACTIONS (8)
  - Haemoglobin decreased [Recovered/Resolved]
  - Blood lactate dehydrogenase increased [Recovered/Resolved]
  - Haemolytic anaemia [Recovered/Resolved]
  - Reticulocytosis [Recovered/Resolved]
  - Hyperbilirubinaemia [Recovered/Resolved]
  - Anti A antibody [Recovered/Resolved]
  - Transaminases increased [Recovered/Resolved]
  - Jaundice [Recovered/Resolved]

NARRATIVE: CASE EVENT DATE: 20140115
